FAERS Safety Report 18606120 (Version 1)
Quarter: 2020Q4

REPORT INFORMATION
  Report Type: Spontaneous
  Country: US (occurrence: US)
  Receive Date: 20201211
  Receipt Date: 20201211
  Transmission Date: 20210114
  Serious: No
  Sender: FDA-Public Use
  Company Number: US-GLAXOSMITHKLINE-US2020239517

PATIENT
  Age: 69 Year
  Sex: Male

DRUGS (2)
  1. VOLTAREN ARTHRITIS PAIN [Suspect]
     Active Substance: DICLOFENAC SODIUM
     Indication: ARTHRITIS
     Dosage: ONE LITTLE BLOB ON EACH KNEE
     Dates: start: 2019, end: 20201201
  2. VOLTAREN ARTHRITIS PAIN [Suspect]
     Active Substance: DICLOFENAC SODIUM
     Dosage: ONE LITTLE BLOB ON EACH KNEE
     Dates: start: 2019, end: 20201201

REACTIONS (6)
  - Off label use [Unknown]
  - Product use issue [Unknown]
  - Contraindicated product administered [Unknown]
  - Dyspnoea [Unknown]
  - Incorrect dose administered [Unknown]
  - Incorrect product administration duration [Unknown]
